FAERS Safety Report 19244492 (Version 10)
Quarter: 2024Q1

REPORT INFORMATION
  Report Type: Other
  Country: RU (occurrence: None)
  Receive Date: 20210512
  Receipt Date: 20240116
  Transmission Date: 20240410
  Serious: No
  Sender: FDA-Public Use
  Company Number: RU-ROCHE-2827707

PATIENT
  Age: 46 Year
  Sex: Female
  Weight: 51 kg

DRUGS (41)
  1. OCRELIZUMAB [Suspect]
     Active Substance: OCRELIZUMAB
     Indication: Primary progressive multiple sclerosis
     Dosage: 300 MG/ 250 ML. TOTAL VOLUME ADMINISTERED: 260 ML
     Route: 042
     Dates: start: 20201020, end: 20201020
  2. OCRELIZUMAB [Suspect]
     Active Substance: OCRELIZUMAB
     Dosage: 300 MG/ 250 ML. TOTAL VOLUME ADMINISTERED: 260 ML
     Route: 042
     Dates: start: 20201103, end: 20201103
  3. OCRELIZUMAB [Suspect]
     Active Substance: OCRELIZUMAB
     Dosage: 600 MG/ 500 ML, TOTAL VOLUME ADMINISTERED: 520 ML
     Route: 042
     Dates: start: 20210429, end: 20210429
  4. OCRELIZUMAB [Suspect]
     Active Substance: OCRELIZUMAB
     Dosage: TOTAL VOLUME ADMINISTERED: 520 ML
     Route: 042
     Dates: start: 20220601, end: 20220601
  5. OCRELIZUMAB [Suspect]
     Active Substance: OCRELIZUMAB
     Dosage: TOTAL VOLUME ADMINISTERED: 520 ML
     Route: 042
     Dates: start: 20211203, end: 20211203
  6. OCRELIZUMAB [Suspect]
     Active Substance: OCRELIZUMAB
     Dosage: TOTAL VOLUME ADMINISTERED: 520 ML
     Route: 042
     Dates: start: 20221130, end: 20221130
  7. OCRELIZUMAB [Suspect]
     Active Substance: OCRELIZUMAB
     Dosage: TOTAL VOLUME ADMINISTERED: 520 ML
     Route: 042
     Dates: start: 20230525, end: 20230525
  8. OCRELIZUMAB [Suspect]
     Active Substance: OCRELIZUMAB
     Dosage: TOTAL VOLUME ADMINISTERED: 520 ML
     Route: 042
     Dates: start: 20240110, end: 20240110
  9. METHYLPREDNISOLONE [Concomitant]
     Active Substance: METHYLPREDNISOLONE
     Route: 042
     Dates: start: 20201020
  10. METHYLPREDNISOLONE [Concomitant]
     Active Substance: METHYLPREDNISOLONE
     Route: 042
     Dates: start: 20201103
  11. METHYLPREDNISOLONE [Concomitant]
     Active Substance: METHYLPREDNISOLONE
     Route: 042
     Dates: start: 20210429
  12. METHYLPREDNISOLONE [Concomitant]
     Active Substance: METHYLPREDNISOLONE
     Route: 042
     Dates: start: 20211203, end: 20211203
  13. METHYLPREDNISOLONE [Concomitant]
     Active Substance: METHYLPREDNISOLONE
     Route: 042
     Dates: start: 20220601, end: 20220601
  14. METHYLPREDNISOLONE [Concomitant]
     Active Substance: METHYLPREDNISOLONE
     Route: 042
     Dates: start: 20221130, end: 20221130
  15. METHYLPREDNISOLONE [Concomitant]
     Active Substance: METHYLPREDNISOLONE
     Route: 042
     Dates: start: 20230525, end: 20230525
  16. METHYLPREDNISOLONE [Concomitant]
     Active Substance: METHYLPREDNISOLONE
     Route: 042
     Dates: start: 20240110, end: 20240110
  17. CHLOROPYRAMINE HYDROCHLORIDE [Concomitant]
     Active Substance: CHLOROPYRAMINE HYDROCHLORIDE
     Route: 030
     Dates: start: 20201020
  18. CHLOROPYRAMINE HYDROCHLORIDE [Concomitant]
     Active Substance: CHLOROPYRAMINE HYDROCHLORIDE
     Route: 030
     Dates: start: 20201103
  19. CHLOROPYRAMINE HYDROCHLORIDE [Concomitant]
     Active Substance: CHLOROPYRAMINE HYDROCHLORIDE
     Route: 030
     Dates: start: 20210429, end: 20210429
  20. CHLOROPYRAMINE HYDROCHLORIDE [Concomitant]
     Active Substance: CHLOROPYRAMINE HYDROCHLORIDE
     Route: 030
     Dates: start: 20211203, end: 20211203
  21. CHLOROPYRAMINE HYDROCHLORIDE [Concomitant]
     Active Substance: CHLOROPYRAMINE HYDROCHLORIDE
     Route: 030
     Dates: start: 20220601, end: 20220601
  22. CHLOROPYRAMINE HYDROCHLORIDE [Concomitant]
     Active Substance: CHLOROPYRAMINE HYDROCHLORIDE
     Route: 030
     Dates: start: 20221130, end: 20221130
  23. CHLOROPYRAMINE HYDROCHLORIDE [Concomitant]
     Active Substance: CHLOROPYRAMINE HYDROCHLORIDE
     Route: 030
     Dates: start: 20230525, end: 20230525
  24. CHLOROPYRAMINE HYDROCHLORIDE [Concomitant]
     Active Substance: CHLOROPYRAMINE HYDROCHLORIDE
     Route: 030
     Dates: start: 20240110, end: 20240110
  25. ACETAMINOPHEN [Concomitant]
     Active Substance: ACETAMINOPHEN
     Route: 048
     Dates: start: 20201020
  26. ACETAMINOPHEN [Concomitant]
     Active Substance: ACETAMINOPHEN
     Route: 048
     Dates: start: 20201103
  27. ACETAMINOPHEN [Concomitant]
     Active Substance: ACETAMINOPHEN
     Route: 048
     Dates: start: 20210429, end: 20210429
  28. ACETAMINOPHEN [Concomitant]
     Active Substance: ACETAMINOPHEN
     Route: 048
     Dates: start: 20211203, end: 20211203
  29. ACETAMINOPHEN [Concomitant]
     Active Substance: ACETAMINOPHEN
     Route: 048
     Dates: start: 20220601, end: 20220601
  30. ACETAMINOPHEN [Concomitant]
     Active Substance: ACETAMINOPHEN
     Route: 048
     Dates: start: 20221130, end: 20221130
  31. ACETAMINOPHEN [Concomitant]
     Active Substance: ACETAMINOPHEN
     Route: 048
     Dates: start: 20230525, end: 20230525
  32. ACETAMINOPHEN [Concomitant]
     Active Substance: ACETAMINOPHEN
     Route: 048
     Dates: start: 20240110, end: 20240110
  33. OMEPRAZOLE [Concomitant]
     Active Substance: OMEPRAZOLE
     Route: 048
     Dates: start: 20201020
  34. OMEPRAZOLE [Concomitant]
     Active Substance: OMEPRAZOLE
     Route: 048
     Dates: start: 20201103
  35. OMEPRAZOLE [Concomitant]
     Active Substance: OMEPRAZOLE
     Route: 048
     Dates: start: 20210429, end: 20210429
  36. OMEPRAZOLE [Concomitant]
     Active Substance: OMEPRAZOLE
     Route: 048
     Dates: start: 20211203, end: 20211203
  37. OMEPRAZOLE [Concomitant]
     Active Substance: OMEPRAZOLE
     Route: 048
     Dates: start: 20220601, end: 20220601
  38. OMEPRAZOLE [Concomitant]
     Active Substance: OMEPRAZOLE
     Route: 048
     Dates: start: 20221130, end: 20221130
  39. OMEPRAZOLE [Concomitant]
     Active Substance: OMEPRAZOLE
     Route: 048
     Dates: start: 20230525, end: 20230525
  40. OMEPRAZOLE [Concomitant]
     Active Substance: OMEPRAZOLE
     Route: 048
     Dates: start: 20240110, end: 20240110
  41. GABAPENTIN [Concomitant]
     Active Substance: GABAPENTIN
     Route: 048
     Dates: start: 20210322

REACTIONS (2)
  - Salpingo-oophoritis [Not Recovered/Not Resolved]
  - Hepatitis C antibody positive [Recovered/Resolved]

NARRATIVE: CASE EVENT DATE: 20210401
